FAERS Safety Report 16467768 (Version 1)
Quarter: 2019Q2

REPORT INFORMATION
  Report Type: Spontaneous
  Country: US (occurrence: US)
  Receive Date: 20190624
  Receipt Date: 20190624
  Transmission Date: 20190711
  Serious: No
  Sender: FDA-Public Use
  Company Number: PHEH2019US025500

PATIENT
  Sex: Male

DRUGS (1)
  1. PAZEO [Suspect]
     Active Substance: OLOPATADINE HYDROCHLORIDE
     Indication: PRODUCT USED FOR UNKNOWN INDICATION
     Dosage: UNK UNK, BID
     Route: 047

REACTIONS (6)
  - Ocular hyperaemia [Unknown]
  - Eye inflammation [Unknown]
  - Vision blurred [Unknown]
  - Eye pain [Not Recovered/Not Resolved]
  - Drug hypersensitivity [Unknown]
  - Eye irritation [Unknown]
